FAERS Safety Report 20095330 (Version 3)
Quarter: 2022Q1

REPORT INFORMATION
  Report Type: Spontaneous
  Country: US (occurrence: US)
  Receive Date: 20211122
  Receipt Date: 20220114
  Transmission Date: 20220423
  Serious: Yes (Hospitalization, Other)
  Sender: FDA-Public Use
  Company Number: US-SAREPTA THERAPEUTICS INC.-SRP2021-001812

PATIENT
  Age: 15 Year
  Sex: Male
  Weight: 53.91 kg

DRUGS (8)
  1. EXONDYS 51 [Suspect]
     Active Substance: ETEPLIRSEN
     Indication: Duchenne muscular dystrophy
     Dosage: 1600 MILIGRAM, WEEKLY
     Route: 042
     Dates: start: 2015, end: 20210823
  2. EXONDYS 51 [Suspect]
     Active Substance: ETEPLIRSEN
     Dosage: 1800 MILLIGRAM
     Route: 042
     Dates: start: 20210823, end: 202111
  3. LISINOPRIL [Concomitant]
     Active Substance: LISINOPRIL
     Indication: Cardiac dysfunction
     Dosage: 10 MILLIGRAM, QD
     Route: 048
     Dates: start: 20210222
  4. SPIRONOLACTONE [Concomitant]
     Active Substance: SPIRONOLACTONE
     Indication: Cardiac dysfunction
     Dosage: 25 MILLIGRAM, TWICE DAILY
     Route: 048
     Dates: start: 20210222
  5. SPIRONOLACTONE [Concomitant]
     Active Substance: SPIRONOLACTONE
     Dosage: UNK
     Route: 048
     Dates: end: 20210222
  6. PREDNISONE [Concomitant]
     Active Substance: PREDNISONE
     Indication: Product used for unknown indication
     Dosage: 20 MILLIGRAM, QD
     Route: 048
     Dates: start: 201407
  7. PREDNISONE [Concomitant]
     Active Substance: PREDNISONE
     Dosage: 100 MILLIGRAM, SATURDAY AND SUNDAY
     Route: 048
     Dates: start: 201909
  8. VITAMIN D3 [Concomitant]
     Active Substance: CHOLECALCIFEROL
     Indication: Product used for unknown indication
     Dosage: 800 UNITS, QD
     Route: 048
     Dates: start: 2014

REACTIONS (11)
  - Neuromuscular scoliosis [Recovered/Resolved]
  - Wound dehiscence [Recovered/Resolved]
  - Respiratory failure [Unknown]
  - Pneumothorax [Unknown]
  - Anaemia [Unknown]
  - Disease progression [Recovered/Resolved]
  - COVID-19 [Recovered/Resolved]
  - Osteopenia [Unknown]
  - Penile oedema [Unknown]
  - Testicular oedema [Unknown]
  - Oedema peripheral [Unknown]

NARRATIVE: CASE EVENT DATE: 20210325
